FAERS Safety Report 18252114 (Version 4)
Quarter: 2022Q3

REPORT INFORMATION
  Report Type: Spontaneous
  Country: US (occurrence: None)
  Receive Date: 20200910
  Receipt Date: 20220907
  Transmission Date: 20221026
  Serious: No
  Sender: FDA-Public Use
  Company Number: US-FARMAPROD-202003-0242

PATIENT
  Sex: Male
  Weight: 95.340 kg

DRUGS (16)
  1. OXERVATE [Suspect]
     Active Substance: CENEGERMIN-BKBJ
     Indication: Neurotrophic keratopathy
     Route: 047
     Dates: start: 20200109, end: 20200305
  2. OXERVATE [Suspect]
     Active Substance: CENEGERMIN-BKBJ
     Indication: Ulcerative keratitis
     Route: 047
     Dates: start: 20210125, end: 20210322
  3. OXERVATE [Suspect]
     Active Substance: CENEGERMIN-BKBJ
     Indication: Punctate keratitis
     Route: 047
     Dates: start: 20210330, end: 20210524
  4. OXERVATE [Suspect]
     Active Substance: CENEGERMIN-BKBJ
     Route: 047
     Dates: start: 20210622
  5. AZITHROMYCIN [Concomitant]
     Active Substance: AZITHROMYCIN
  6. PRED ACETATE [Concomitant]
     Dosage: 1 DROP TWICE DAILY ON EACH EYE
     Route: 047
     Dates: start: 20180904
  7. FAMVIR [Concomitant]
     Active Substance: FAMCICLOVIR
     Dates: start: 20191011
  8. METOCLOPRAMIDE HYDROCHLORIDE [Concomitant]
     Active Substance: METOCLOPRAMIDE HYDROCHLORIDE
  9. CYCLOBENZAPRINE HYDROCHLORIDE [Concomitant]
     Active Substance: CYCLOBENZAPRINE HYDROCHLORIDE
  10. PANTOPRAZOLE SODIUM [Concomitant]
     Active Substance: PANTOPRAZOLE SODIUM
  11. PREDNISOLONE [Concomitant]
     Active Substance: PREDNISOLONE
  12. FAMOTIDINE [Concomitant]
     Active Substance: FAMOTIDINE
  13. OXYCODONE HYDROCHLORIDE [Concomitant]
     Active Substance: OXYCODONE HYDROCHLORIDE
  14. LOTEMAX [Concomitant]
     Active Substance: LOTEPREDNOL ETABONATE
  15. FAMCICLOVIR [Concomitant]
     Active Substance: FAMCICLOVIR
  16. Sclera lens [Concomitant]

REACTIONS (9)
  - Eye irritation [Unknown]
  - Eye pain [Unknown]
  - Photophobia [Recovering/Resolving]
  - Eyelid irritation [Unknown]
  - Malaise [Not Recovered/Not Resolved]
  - Eye infection [Recovered/Resolved]
  - Visual impairment [Not Recovered/Not Resolved]
  - Vision blurred [Not Recovered/Not Resolved]
  - Viral infection [Unknown]
